FAERS Safety Report 7681478-7 (Version None)
Quarter: 2011Q3

REPORT INFORMATION
  Report Type: 
  Country: None (occurrence: None)
  Receive Date: 20110812
  Receipt Date: 20110801
  Transmission Date: 20111222
  Serious: Yes (Hospitalization)
  Sender: FDA-Public Use
  Company Number: PHHY2011US70968

PATIENT
  Age: 65 Year
  Sex: Female

DRUGS (6)
  1. AMLODIPINE [Concomitant]
     Dosage: 10 MG, UNK
  2. LISINOPRIL [Concomitant]
     Dosage: 40 MG, UNK
  3. METOPROLOL TARTRATE [Suspect]
     Dosage: 50 MG, BID
  4. HYDRALAZINE HCL [Suspect]
     Dosage: 100 MG, BID
  5. FUROSEMIDE [Concomitant]
     Dosage: 80 MG, BID
  6. CLONIDINE [Concomitant]
     Dosage: 0.1 MG, BID

REACTIONS (4)
  - VISION BLURRED [None]
  - SINUS BRADYCARDIA [None]
  - SINUS ARRHYTHMIA [None]
  - DYSARTHRIA [None]
